FAERS Safety Report 12542412 (Version 6)
Quarter: 2018Q1

REPORT INFORMATION
  Report Type: Spontaneous
  Country: US (occurrence: US)
  Receive Date: 20160708
  Receipt Date: 20180313
  Transmission Date: 20180508
  Serious: Yes (Hospitalization)
  Sender: FDA-Public Use
  Company Number: US-CELGENEUS-USA-2016071046

PATIENT
  Sex: Female

DRUGS (2)
  1. REVLIMID [Suspect]
     Active Substance: LENALIDOMIDE
     Indication: PLASMA CELL MYELOMA
     Dosage: 25MG
     Route: 048
     Dates: start: 201601
  2. REVLIMID [Suspect]
     Active Substance: LENALIDOMIDE
     Dosage: 10MG
     Route: 048
     Dates: start: 201604

REACTIONS (13)
  - Thrombosis [Unknown]
  - Oral infection [Unknown]
  - Eye infection [Unknown]
  - Cough [Unknown]
  - Pneumonia [Unknown]
  - Rash generalised [Unknown]
  - Visual impairment [Unknown]
  - Mouth swelling [Unknown]
  - Drug ineffective [Unknown]
  - Paralysis [Unknown]
  - Protein total increased [Unknown]
  - Peripheral swelling [Unknown]
  - Oral herpes [Unknown]

NARRATIVE: CASE EVENT DATE: 2016
